FAERS Safety Report 5819373-8 (Version None)
Quarter: 2008Q3

REPORT INFORMATION
  Report Type: 
  Country: None (occurrence: None)
  Receive Date: 20080718
  Receipt Date: 20080702
  Transmission Date: 20090109
  Serious: Yes (Disabling)
  Sender: FDA-Public Use
  Company Number: 1000000013

PATIENT
  Age: 60 Year
  Sex: Male

DRUGS (5)
  1. ESCITALOPRAM [Suspect]
     Indication: PAIN
     Dosage: 20 MG, ORAL
     Route: 048
     Dates: start: 20070701, end: 20080501
  2. METFORMIN (500 MILLIGRAM) [Concomitant]
  3. ADIZEM-XL (300 MILLIGRAM) [Concomitant]
  4. COAPROVEL [Concomitant]
  5. LIPITOR (10 MILLIGRAM) [Concomitant]

REACTIONS (1)
  - DEAFNESS [None]
